FAERS Safety Report 6815523-5 (Version None)
Quarter: 2010Q3

REPORT INFORMATION
  Report Type: 
  Country: None (occurrence: None)
  Receive Date: 20100702
  Receipt Date: 20100303
  Transmission Date: 20110219
  Serious: Yes (Death, Hospitalization)
  Sender: FDA-Public Use
  Company Number: PHHY2010BR05429

PATIENT
  Sex: Female

DRUGS (2)
  1. FORASEQ [Suspect]
     Indication: EMPHYSEMA
     Dosage: 2 DF, BID
  2. DIOVAN [Suspect]
     Indication: HYPERTENSION
     Dosage: ONE DF DAILY

REACTIONS (6)
  - DYSPNOEA [None]
  - EMPHYSEMA [None]
  - INFECTION [None]
  - MULTI-ORGAN FAILURE [None]
  - RENAL FAILURE [None]
  - SEPTIC SHOCK [None]
